FAERS Safety Report 8177994-4 (Version None)
Quarter: 2012Q1

REPORT INFORMATION
  Report Type: 
  Country: None (occurrence: None)
  Receive Date: 20120301
  Receipt Date: 20120229
  Transmission Date: 20120608
  Serious: Yes (Other)
  Sender: FDA-Public Use
  Company Number: IT-BAYER-2012-020226

PATIENT

DRUGS (1)
  1. NEXAVAR [Suspect]
     Indication: HEPATIC NEOPLASM MALIGNANT
     Dosage: UNK

REACTIONS (6)
  - DECREASED APPETITE [None]
  - ASTHENIA [None]
  - DIARRHOEA [None]
  - HEPATOTOXICITY [None]
  - VOMITING [None]
  - WEIGHT DECREASED [None]
